FAERS Safety Report 8363816-5 (Version None)
Quarter: 2012Q2

REPORT INFORMATION
  Report Type: 
  Country: None (occurrence: None)
  Receive Date: 20120516
  Receipt Date: 20120514
  Transmission Date: 20120825
  Serious: No
  Sender: FDA-Public Use
  Company Number: US-PFIZER INC-2012117814

PATIENT
  Sex: Male
  Weight: 74.83 kg

DRUGS (7)
  1. GABAPENTIN [Suspect]
     Indication: NEUROPATHY PERIPHERAL
     Dosage: 100 MG, 1X/DAY
  2. PROMETHAZINE [Concomitant]
     Indication: NAUSEA
     Dosage: 25 MG, 1X/DAY
  3. LYRICA [Suspect]
     Indication: NEUROPATHY PERIPHERAL
     Dosage: 50 MG, 1X/DAY
     Dates: start: 20120401
  4. CLONIDINE HYDROCHLORIDE [Concomitant]
     Indication: HYPERTENSION
     Dosage: 1 MG, 3X/DAY
  5. RENAVIT [Concomitant]
     Dosage: UNK, DAILY
  6. AMLODIPINE [Concomitant]
     Dosage: 10 MG, 1X/DAY
  7. ROPINIROLE [Concomitant]
     Indication: RESTLESS LEGS SYNDROME
     Dosage: 6 MG, 1X/DAY
     Route: 048

REACTIONS (3)
  - THERAPEUTIC RESPONSE DELAYED [None]
  - SOMNOLENCE [None]
  - DRUG INEFFECTIVE [None]
